FAERS Safety Report 15082069 (Version 1)
Quarter: 2018Q2

REPORT INFORMATION
  Report Type: Spontaneous
  Country: US (occurrence: US)
  Receive Date: 20180628
  Receipt Date: 20180628
  Transmission Date: 20180711
  Serious: Yes (Life-Threatening, Hospitalization)
  Sender: FDA-Public Use
  Company Number: US-KALEO, INC.-2016SA045531

PATIENT
  Age: 21 Year
  Sex: Female

DRUGS (1)
  1. AUVI-Q [Suspect]
     Active Substance: EPINEPHRINE
     Indication: ANGIOEDEMA
     Dosage: UNKNOWN
     Route: 042

REACTIONS (10)
  - Sinus tachycardia [Recovered/Resolved]
  - Pulmonary oedema [Recovered/Resolved]
  - Chest X-ray abnormal [Unknown]
  - Hypoxia [Recovering/Resolving]
  - Stress cardiomyopathy [Recovered/Resolved]
  - Ventricular hypokinesia [Recovered/Resolved]
  - Tachypnoea [Recovering/Resolving]
  - Hypotension [Recovered/Resolved]
  - Incorrect route of drug administration [Unknown]
  - Ejection fraction decreased [Recovered/Resolved]
